FAERS Safety Report 19047412 (Version 1)
Quarter: 2021Q1

REPORT INFORMATION
  Report Type: Spontaneous
  Country: BG (occurrence: BG)
  Receive Date: 20210323
  Receipt Date: 20210323
  Transmission Date: 20210420
  Serious: Yes (Other)
  Sender: FDA-Public Use
  Company Number: BG-UCBSA-2021013443

PATIENT
  Age: 66 Year
  Sex: Male

DRUGS (7)
  1. PGB [Concomitant]
     Active Substance: PREGABALIN
     Indication: PARTIAL SEIZURES
     Dosage: 600 MILLIGRAM, UNK
     Dates: start: 2020
  2. BRIVARACETAM [Suspect]
     Active Substance: BRIVARACETAM
     Indication: PARTIAL SEIZURES
     Dosage: 100 MILLIGRAM, 2X/DAY (BID)
     Dates: start: 202008
  3. PHENOBARBITAL. [Concomitant]
     Active Substance: PHENOBARBITAL
     Indication: PARTIAL SEIZURES
     Dosage: 125 MILLIGRAM, UNK
     Dates: start: 2020
  4. LEVETIRACETAM. [Suspect]
     Active Substance: LEVETIRACETAM
     Indication: PARTIAL SEIZURES
     Dosage: 3000 MILLIGRAM, UNK
     Dates: start: 2020
  5. ESLICARBAZEPINE [Concomitant]
     Active Substance: ESLICARBAZEPINE
     Indication: PARTIAL SEIZURES
     Dosage: 800 MILLIGRAM, UNK
     Dates: start: 202011
  6. LEVETIRACETAM. [Suspect]
     Active Substance: LEVETIRACETAM
     Dosage: 3000 MILLIGRAM
     Dates: start: 202011
  7. VALPROIC ACID. [Concomitant]
     Active Substance: VALPROIC ACID
     Indication: PARTIAL SEIZURES
     Dosage: 2000 MILLIGRAM, UNK
     Dates: start: 2020

REACTIONS (2)
  - Seizure [Unknown]
  - Drug ineffective [Unknown]
